FAERS Safety Report 13801854 (Version 2)
Quarter: 2017Q3

REPORT INFORMATION
  Report Type: Spontaneous
  Country: DE (occurrence: DE)
  Receive Date: 20170727
  Receipt Date: 20170831
  Transmission Date: 20171127
  Serious: Yes (Other)
  Sender: FDA-Public Use
  Company Number: DE-BAYER-2017-142006

PATIENT
  Age: 34 Year
  Sex: Female

DRUGS (3)
  1. MIRENA [Suspect]
     Active Substance: LEVONORGESTREL
     Indication: CONTRACEPTION
     Dosage: 20 MCG/24HR, CONT
     Route: 015
     Dates: start: 20170711
  2. CERVIDIL [GEMEPROST] [Concomitant]
  3. MIRENA [Suspect]
     Active Substance: LEVONORGESTREL
     Indication: CONTRACEPTION
     Dosage: 20 MCG/24HR, CONT
     Route: 015
     Dates: start: 20161216, end: 20170711

REACTIONS (6)
  - Abdominal distension [None]
  - Hydrometra [Not Recovered/Not Resolved]
  - Post procedural haemorrhage [None]
  - Hydrometra [None]
  - Uterine polyp [None]
  - Uterine haemorrhage [None]

NARRATIVE: CASE EVENT DATE: 201706
